FAERS Safety Report 5310185-0 (Version None)
Quarter: 2007Q2

REPORT INFORMATION
  Report Type: 
  Country: None (occurrence: None)
  Receive Date: 20070423
  Receipt Date: 20070417
  Transmission Date: 20071010
  Serious: Yes (Hospitalization, Disabling)
  Sender: FDA-Public Use
  Company Number: S07-FRA-01073-01

PATIENT
  Age: 85 Year
  Sex: Male

DRUGS (13)
  1. ESCITALOPRAM [Suspect]
     Dosage: 10 MG QD PO
     Route: 048
  2. KARDEGIC (ACETYLSALICYLIC LYSINE) [Suspect]
     Dosage: 75 MG QD PO
     Route: 048
  3. ATACAND [Concomitant]
  4. COVARSAL (MOLSIDOMINE) [Concomitant]
  5. NITRIDERM (GLYCERYL TRINITRATE) [Concomitant]
  6. AMLODIPINE BESYLATE [Concomitant]
  7. EBIXA (MEMANTINE HYDROCHLORIDE) [Concomitant]
  8. MODOPAR [Concomitant]
  9. TADENAN (PYGEUM AFRICANUM) [Concomitant]
  10. VASTAREL (TRIMETAZIDINE HYDROCHLORIDE) [Concomitant]
  11. DAFALGAN (PARACETAMOL) [Concomitant]
  12. XANAX [Concomitant]
  13. PRAVASTATIN [Concomitant]

REACTIONS (8)
  - ACTIVATED PARTIAL THROMBOPLASTIN TIME PROLONGED [None]
  - BLOOD CREATININE INCREASED [None]
  - BLOOD UREA INCREASED [None]
  - FALL [None]
  - HAEMATOCRIT DECREASED [None]
  - HEAD INJURY [None]
  - RED BLOOD CELL COUNT DECREASED [None]
  - SUBDURAL HAEMORRHAGE [None]
